FAERS Safety Report 10130869 (Version 1)
Quarter: 2014Q2

REPORT INFORMATION
  Report Type: Spontaneous
  Country: US (occurrence: None)
  Receive Date: 20140425
  Receipt Date: 20140425
  Transmission Date: 20141212
  Serious: Yes (Hospitalization, Other)
  Sender: FDA-Public Use
  Company Number: None

PATIENT
  Age: 84 Year
  Sex: Female

DRUGS (16)
  1. AXONA [Suspect]
  2. RISPERIDONE [Suspect]
  3. ALENDRONATE [Concomitant]
  4. AMIDARONE [Concomitant]
  5. ASPIRIN [Concomitant]
  6. CALCIUM [Concomitant]
  7. CALCIUM [Concomitant]
  8. COMBIGAN [Concomitant]
  9. DETROL [Concomitant]
  10. MULTI-DAY [Concomitant]
  11. PRILOSEC [Concomitant]
  12. VITAMIN B-2 [Concomitant]
  13. VITAMIN C [Concomitant]
  14. VITAMIN D3 [Concomitant]
  15. CARBIDOPA-LEVODOPA [Suspect]
  16. SYNTHROID [Concomitant]

REACTIONS (7)
  - Mobility decreased [None]
  - Fall [None]
  - Asthenia [None]
  - Streptococcal urinary tract infection [None]
  - Tachycardia [None]
  - Head injury [None]
  - Blood thyroid stimulating hormone abnormal [None]
